FAERS Safety Report 9385718 (Version 1)
Quarter: 2013Q3

REPORT INFORMATION
  Report Type: Spontaneous
  Country: US (occurrence: US)
  Receive Date: 20130705
  Receipt Date: 20130705
  Transmission Date: 20140515
  Serious: Yes (Death, Hospitalization)
  Sender: FDA-Public Use
  Company Number: US-VERTEX PHARMACEUTICALS INC-2013-007704

PATIENT
  Age: 69 Year
  Sex: Female

DRUGS (2)
  1. INCIVEK [Suspect]
     Indication: HEPATITIS C
     Dosage: UNK
  2. LAXATIVES [Concomitant]

REACTIONS (4)
  - Death [Fatal]
  - Organ failure [Unknown]
  - Hospitalisation [Unknown]
  - Diarrhoea [Unknown]
